FAERS Safety Report 18139593 (Version 4)
Quarter: 2021Q4

REPORT INFORMATION
  Report Type: Spontaneous
  Country: US (occurrence: US)
  Receive Date: 20200812
  Receipt Date: 20211111
  Transmission Date: 20220303
  Serious: Yes (Other)
  Sender: FDA-Public Use
  Company Number: US-PFIZER INC-2020307365

PATIENT
  Age: 69 Year
  Sex: Female
  Weight: 84.82 kg

DRUGS (1)
  1. LYRICA [Suspect]
     Active Substance: PREGABALIN
     Indication: Neuropathy peripheral
     Dosage: 150 MG, 3X/DAY (TAKE 1 CAPSULE THREE TIMES A DAY 90 DAYS)
     Route: 048
     Dates: end: 202109

REACTIONS (5)
  - Gallbladder disorder [Recovering/Resolving]
  - Memory impairment [Unknown]
  - Thinking abnormal [Unknown]
  - Apathy [Unknown]
  - Pain [Unknown]
